FAERS Safety Report 13017291 (Version 2)
Quarter: 2017Q1

REPORT INFORMATION
  Report Type: Spontaneous
  Country: CA (occurrence: CA)
  Receive Date: 20161212
  Receipt Date: 20170126
  Transmission Date: 20170428
  Serious: Yes (Other)
  Sender: FDA-Public Use
  Company Number: CA-PFIZER INC-2016568123

PATIENT
  Age: 38 Year
  Sex: Female
  Weight: 101 kg

DRUGS (5)
  1. VENTOLIN [Concomitant]
     Active Substance: ALBUTEROL SULFATE
     Indication: ASTHMA
     Dosage: 100 UG, UNK
     Route: 055
  2. CHAMPIX [Suspect]
     Active Substance: VARENICLINE TARTRATE
     Dosage: 0.5 MG, ALTERNATE DAY
     Route: 048
     Dates: start: 2013
  3. CHAMPIX [Suspect]
     Active Substance: VARENICLINE TARTRATE
     Indication: SLEEP TERROR
     Dosage: 0.5 MG, DAILY
     Route: 048
     Dates: start: 201305
  4. FLOVENT [Concomitant]
     Active Substance: FLUTICASONE PROPIONATE
     Indication: ASTHMA
     Dosage: 125 UG, UNK
     Route: 055
  5. SYNTHROID [Concomitant]
     Active Substance: LEVOTHYROXINE SODIUM
     Indication: HYPOTHYROIDISM
     Dosage: 0.112 MG, DAILY
     Route: 048
     Dates: start: 1997

REACTIONS (5)
  - Drug ineffective for unapproved indication [Unknown]
  - Somnambulism [Recovered/Resolved]
  - Disease recurrence [Recovered/Resolved]
  - Depression [Unknown]
  - Seizure [Recovered/Resolved]

NARRATIVE: CASE EVENT DATE: 201305
